FAERS Safety Report 8046508-1 (Version None)
Quarter: 2012Q1

REPORT INFORMATION
  Report Type: 
  Country: None (occurrence: None)
  Receive Date: 20120113
  Receipt Date: 20120109
  Transmission Date: 20120608
  Serious: Yes (Other)
  Sender: FDA-Public Use
  Company Number: US-ABBOTT-12P-163-0891787-00

PATIENT
  Sex: Female
  Weight: 65.376 kg

DRUGS (1)
  1. SYNTHROID [Suspect]
     Indication: THYROIDECTOMY
     Dates: start: 19530101

REACTIONS (3)
  - MALAISE [None]
  - ACOUSTIC NEUROMA [None]
  - HYPOAESTHESIA [None]
